FAERS Safety Report 6725375-X (Version None)
Quarter: 2010Q2

REPORT INFORMATION
  Report Type: 
  Country: None (occurrence: None)
  Receive Date: 20100513
  Receipt Date: 20100513
  Transmission Date: 20101027
  Serious: Yes (Disabling)
  Sender: FDA-Public Use
  Company Number: None

PATIENT
  Sex: Male
  Weight: 115.6672 kg

DRUGS (3)
  1. ABILIFY [Suspect]
     Indication: SCHIZOPHRENIA
     Dosage: 1 DAILY
     Dates: start: 20051129
  2. ABILIFY [Suspect]
     Indication: SCHIZOPHRENIA
     Dosage: 1 DAILY
     Dates: start: 20090904
  3. ... [Concomitant]

REACTIONS (4)
  - ARTHRALGIA [None]
  - BACK PAIN [None]
  - MUSCULOSKELETAL PAIN [None]
  - TREMOR [None]
